FAERS Safety Report 5065406-9 (Version None)
Quarter: 2006Q3

REPORT INFORMATION
  Report Type: 
  Country: None (occurrence: None)
  Receive Date: 20060731
  Receipt Date: 20060725
  Transmission Date: 20061208
  Serious: Yes (Life-Threatening)
  Sender: FDA-Public Use
  Company Number: FR-AVENTIS-200612636FR

PATIENT
  Age: 82 Year
  Sex: Female

DRUGS (10)
  1. LOVENOX [Suspect]
     Route: 058
     Dates: end: 20060424
  2. ASPIRIN [Suspect]
     Route: 048
     Dates: start: 20060410, end: 20060424
  3. PLAVIX [Suspect]
     Route: 048
     Dates: end: 20060410
  4. PLAVIX [Suspect]
     Route: 048
     Dates: start: 20060414, end: 20060424
  5. PREVISCAN [Suspect]
     Route: 048
     Dates: start: 20060410
  6. PREVISCAN [Suspect]
     Route: 048
     Dates: start: 20060422
  7. ATORVASTATIN CALCIUM [Concomitant]
  8. COVERSYL [Concomitant]
  9. PANTOPRAZOLE SODIUM [Concomitant]
  10. LASILIX [Concomitant]

REACTIONS (3)
  - ANAEMIA [None]
  - COAGULOPATHY [None]
  - MELAENA [None]
